FAERS Safety Report 20988483 (Version 2)
Quarter: 2022Q3

REPORT INFORMATION
  Report Type: Spontaneous
  Country: JP (occurrence: JP)
  Receive Date: 20220621
  Receipt Date: 20220702
  Transmission Date: 20221026
  Serious: Yes (Hospitalization)
  Sender: FDA-Public Use
  Company Number: JP-TEVA-2022-JP-2047572

PATIENT
  Age: 68 Year
  Sex: Female

DRUGS (2)
  1. PREDNISOLONE [Suspect]
     Active Substance: PREDNISOLONE
     Indication: Focal segmental glomerulosclerosis
     Dosage: 50 MG/KG DAILY;
     Route: 065
  2. METHYLPREDNISOLONE [Suspect]
     Active Substance: METHYLPREDNISOLONE
     Indication: Focal segmental glomerulosclerosis
     Dosage: RECEIVED THREE COURSES OF 1000MG METHYLPREDNISOLONE FOR THREE DAYS
     Route: 065

REACTIONS (3)
  - Pneumonia [Recovered/Resolved]
  - Glucose tolerance impaired [Recovered/Resolved]
  - Therapy non-responder [Unknown]
